FAERS Safety Report 6668976-X (Version None)
Quarter: 2010Q2

REPORT INFORMATION
  Report Type: 
  Country: None (occurrence: None)
  Receive Date: 20100402
  Receipt Date: 20100324
  Transmission Date: 20101027
  Serious: Yes (Death)
  Sender: FDA-Public Use
  Company Number: 009314

PATIENT
  Age: 49 Year
  Sex: Male

DRUGS (1)
  1. LACOSAMIDE [Suspect]
     Indication: EPILEPSY
     Dosage: ORAL
     Route: 048

REACTIONS (1)
  - DEATH [None]
